FAERS Safety Report 24877005 (Version 1)
Quarter: 2025Q1

REPORT INFORMATION
  Report Type: Spontaneous
  Country: GB (occurrence: GB)
  Receive Date: 20250123
  Receipt Date: 20250123
  Transmission Date: 20250409
  Serious: Yes (Hospitalization, Other)
  Sender: AUROBINDO
  Company Number: GB-MHRA-MED-202501111328461880-VPBNH

PATIENT
  Age: 54 Year
  Weight: 55 kg

DRUGS (2)
  1. METRONIDAZOLE [Suspect]
     Active Substance: METRONIDAZOLE
     Indication: Tooth abscess
     Dosage: 400 MILLIGRAM, 3 TIMES A DAY (400MG TABLETS, ONE TABLET 3X PER DAY, FOR 7 DAYS)
     Route: 065
     Dates: start: 20240528, end: 20240601
  2. BARICITINIB [Concomitant]
     Active Substance: BARICITINIB
     Indication: Rheumatoid arthritis
     Route: 065
     Dates: start: 2020

REACTIONS (7)
  - Photophobia [Recovered/Resolved]
  - Lethargy [Recovered/Resolved]
  - Hypotension [Recovered/Resolved]
  - Headache [Recovered/Resolved]
  - Musculoskeletal stiffness [Recovered/Resolved]
  - Tinnitus [Recovered/Resolved]
  - Vision blurred [Recovered/Resolved]
